FAERS Safety Report 23674395 (Version 1)
Quarter: 2024Q1

REPORT INFORMATION
  Report Type: Spontaneous
  Country: US (occurrence: US)
  Receive Date: 20240326
  Receipt Date: 20240326
  Transmission Date: 20240409
  Serious: Yes (Hospitalization)
  Sender: FDA-Public Use
  Company Number: US-ABBVIE-5691728

PATIENT
  Age: 74 Year
  Sex: Female

DRUGS (3)
  1. ADALIMUMAB [Suspect]
     Active Substance: ADALIMUMAB\ISOPROPYL ALCOHOL
     Indication: Crohn^s disease
     Dosage: 40 MILLIGRAM
     Route: 058
  2. ADALIMUMAB [Suspect]
     Active Substance: ADALIMUMAB\ISOPROPYL ALCOHOL
     Dosage: 40 MILLIGRAM
     Route: 058
  3. MESALAMINE [Suspect]
     Active Substance: MESALAMINE
     Indication: Crohn^s disease
     Route: 065

REACTIONS (3)
  - Tuberculosis [Unknown]
  - Treatment failure [Unknown]
  - Diarrhoea [Recovering/Resolving]
